FAERS Safety Report 5842831-7 (Version None)
Quarter: 2008Q3

REPORT INFORMATION
  Report Type: 
  Country: None (occurrence: None)
  Receive Date: 20080812
  Receipt Date: 20080812
  Transmission Date: 20090109
  Serious: Yes (Other)
  Sender: FDA-Public Use
  Company Number: None

PATIENT
  Age: 59 Year
  Sex: Male

DRUGS (6)
  1. LEVAQUIN [Suspect]
     Indication: CELLULITIS
     Dosage: 500MG  ONE QD PO
     Route: 048
     Dates: start: 20080721, end: 20080809
  2. GLUCOPHAGE [Concomitant]
  3. LIPITOR [Concomitant]
  4. LANTUS [Concomitant]
  5. BENICAR [Concomitant]
  6. FLONASE [Concomitant]

REACTIONS (1)
  - TENDONITIS [None]
